FAERS Safety Report 8155585-9 (Version None)
Quarter: 2012Q1

REPORT INFORMATION
  Report Type: 
  Country: None (occurrence: None)
  Receive Date: 20120222
  Receipt Date: 20120214
  Transmission Date: 20120608
  Serious: Yes (Death, Other)
  Sender: FDA-Public Use
  Company Number: PHHY2011JP112224

PATIENT
  Sex: Female
  Weight: 63 kg

DRUGS (15)
  1. EQUA [Concomitant]
     Dosage: 100 MG, UNK
     Route: 048
     Dates: start: 20101224
  2. LASIX [Concomitant]
     Dosage: 20 MG, UNK
     Route: 048
     Dates: start: 20100827
  3. MITIGLINIDE [Concomitant]
     Dosage: 30 MG, UNK
     Route: 048
     Dates: start: 20101130
  4. EXJADE [Suspect]
     Indication: MYELODYSPLASTIC SYNDROME
     Dosage: 750 MG, DAILY
     Route: 048
     Dates: start: 20101007, end: 20101020
  5. EXJADE [Suspect]
     Dosage: 1000 MG, DAILY
     Route: 048
     Dates: start: 20101021, end: 20101228
  6. LANIRAPID [Concomitant]
     Dosage: 0.1 MG, UNK
     Route: 048
     Dates: start: 20100827
  7. BASEN [Concomitant]
     Dosage: 0.9 MG, UNK
     Route: 048
     Dates: start: 20101125, end: 20101129
  8. JANUVIA [Concomitant]
     Dosage: 50 MG, UNK
     Route: 048
     Dates: start: 20101203, end: 20101223
  9. RED BLOOD CELLS, CONCENTRATED [Concomitant]
     Dosage: 2 U, EVERY 2 WEEKS
     Dates: start: 20100922, end: 20110111
  10. BISOPROLOL FUMARATE [Concomitant]
     Dosage: 5 MG, UNK
     Route: 048
     Dates: start: 20100827
  11. AMARYL [Concomitant]
     Dosage: 1.5 MG, UNK
     Route: 048
     Dates: start: 20100827, end: 20101125
  12. WARFARIN SODIUM [Concomitant]
     Dosage: 1.5 MG, UNK
     Route: 048
     Dates: start: 20100827
  13. EXJADE [Suspect]
     Dosage: 1250 MG, DAILY
     Route: 048
     Dates: start: 20101229
  14. RED BLOOD CELLS, CONCENTRATED [Concomitant]
     Dosage: 2 U, EVERY 2 WEEKS
     Dates: start: 20110125, end: 20110203
  15. EXJADE [Suspect]
     Indication: IRON OVERLOAD
     Dosage: 500 MG, DAILY
     Route: 048
     Dates: start: 20100827, end: 20101006

REACTIONS (5)
  - MULTI-ORGAN FAILURE [None]
  - DRUG INEFFECTIVE [None]
  - CARDIAC FAILURE CONGESTIVE [None]
  - RENAL FAILURE ACUTE [None]
  - DIABETES MELLITUS [None]
